FAERS Safety Report 12047329 (Version 3)
Quarter: 2018Q4

REPORT INFORMATION
  Report Type: Spontaneous
  Country: US (occurrence: US)
  Receive Date: 20160208
  Receipt Date: 20181209
  Transmission Date: 20190204
  Serious: Yes (Other)
  Sender: FDA-Public Use
  Company Number: US-BIOGEN-2016BI00180745

PATIENT
  Age: 60 Year
  Sex: Female

DRUGS (1)
  1. AVONEX [Suspect]
     Active Substance: INTERFERON BETA-1A
     Indication: MULTIPLE SCLEROSIS
     Route: 030
     Dates: start: 20100704

REACTIONS (6)
  - Bipolar disorder [Unknown]
  - Fear [Unknown]
  - Stress [Unknown]
  - Dysphonia [Unknown]
  - Multiple sclerosis relapse [Unknown]
  - Schizophrenia [Unknown]

NARRATIVE: CASE EVENT DATE: 20160125
